FAERS Safety Report 7858901 (Version 6)
Quarter: 2013Q4

REPORT INFORMATION
  Report Type: Report from Study
  Country: JP (occurrence: JP)
  Receive Date: 20110316
  Receipt Date: 20131108
  Transmission Date: 20140711
  Serious: Yes (Life-Threatening, Hospitalization, Other)
  Sender: FDA-Public Use
  Company Number: JP-CELGENEUS-087-21880-10102310

PATIENT
  Age: 37 Year
  Sex: Male

DRUGS (94)
  1. REVLIMID [Suspect]
     Indication: PLASMA CELL MYELOMA
     Dosage: 25 MILLIGRAM
     Route: 048
     Dates: start: 20101008, end: 20101028
  2. REVLIMID [Suspect]
     Dosage: 25 MILLIGRAM
     Route: 048
     Dates: start: 20101105, end: 20101125
  3. REVLIMID [Suspect]
     Dosage: 25 MILLIGRAM
     Route: 048
     Dates: start: 20101203, end: 20101211
  4. REVLIMID [Suspect]
     Dosage: 25 MILLIGRAM
     Route: 048
     Dates: start: 20110119, end: 20110208
  5. REVLIMID [Suspect]
     Dosage: 25 MILLIGRAM
     Route: 048
     Dates: start: 20110313, end: 20110404
  6. REVLIMID [Suspect]
     Dosage: 25 MILLIGRAM
     Route: 048
     Dates: start: 20110424, end: 20110507
  7. REVLIMID [Suspect]
     Dosage: 15 MILLIGRAM
     Route: 048
     Dates: start: 20110508, end: 20110514
  8. REVLIMID [Suspect]
     Dosage: 15 MILLIGRAM
     Route: 048
     Dates: start: 20110523, end: 20110612
  9. REVLIMID [Suspect]
     Dosage: 15 MILLIGRAM
     Route: 048
     Dates: start: 20110626, end: 20110716
  10. REVLIMID [Suspect]
     Dosage: 15 MILLIGRAM
     Route: 048
     Dates: start: 20110729, end: 20110818
  11. REVLIMID [Suspect]
     Dosage: 15 MILLIGRAM
     Route: 048
     Dates: start: 20110826, end: 20110915
  12. REVLIMID [Suspect]
     Dosage: 15 MILLIGRAM
     Route: 048
     Dates: start: 20110923, end: 20130929
  13. REVLIMID [Suspect]
     Dosage: 15 MILLIGRAM
     Route: 048
     Dates: start: 20111106, end: 20111119
  14. REVLIMID [Suspect]
     Dosage: 15 MILLIGRAM
     Route: 048
     Dates: start: 20111204, end: 20111217
  15. REVLIMID [Suspect]
     Dosage: 15 MILLIGRAM
     Route: 048
     Dates: start: 20120108, end: 20120121
  16. REVLIMID [Suspect]
     Dosage: 15 MILLIGRAM
     Route: 048
     Dates: start: 20120205, end: 20120218
  17. REVLIMID [Suspect]
     Dosage: 15 MILLIGRAM
     Route: 048
     Dates: start: 20120306, end: 20120319
  18. REVLIMID [Suspect]
     Dosage: 15 MILLIGRAM
     Route: 048
     Dates: start: 20120408, end: 20120421
  19. REVLIMID [Suspect]
     Dosage: 15 MILLIGRAM
     Route: 048
     Dates: start: 20120513, end: 20120526
  20. REVLIMID [Suspect]
     Dosage: 15 MILLIGRAM
     Route: 048
     Dates: start: 20120616, end: 20120629
  21. REVLIMID [Suspect]
     Dosage: 15 MILLIGRAM
     Route: 048
     Dates: start: 20120727, end: 20120809
  22. REVLIMID [Suspect]
     Dosage: 15 MILLIGRAM
     Route: 048
     Dates: start: 20120902, end: 20120915
  23. REVLIMID [Suspect]
     Dosage: 15 MILLIGRAM
     Route: 048
     Dates: start: 20121007, end: 20121007
  24. LENADEX [Suspect]
     Indication: PLASMA CELL MYELOMA
     Dosage: 4 MILLIGRAM
     Route: 048
     Dates: start: 20101008, end: 20101011
  25. LENADEX [Suspect]
     Dosage: 4 MILLIGRAM
     Route: 048
     Dates: start: 20101015, end: 20101021
  26. LENADEX [Suspect]
     Dosage: 4 MILLIGRAM
     Route: 048
     Dates: start: 20101112, end: 20101125
  27. LENADEX [Suspect]
     Dosage: 4 MILLIGRAM
     Route: 048
     Dates: start: 20110119, end: 20110123
  28. DECADRON [Concomitant]
     Indication: PLASMA CELL MYELOMA
     Dosage: 2 MILLIGRAM
     Route: 048
     Dates: start: 20101022, end: 20101028
  29. DECADRON [Concomitant]
     Dosage: 1 MILLIGRAM
     Route: 048
     Dates: start: 20101105, end: 20101111
  30. DECADRON [Concomitant]
     Dosage: 12 MILLIGRAM
     Route: 048
     Dates: start: 20101126, end: 20101211
  31. DECADRON [Concomitant]
     Dosage: 2 MILLIGRAM
     Route: 048
     Dates: start: 20110124, end: 20110125
  32. DECADRON [Concomitant]
     Dosage: 4 MILLIGRAM
     Route: 048
     Dates: start: 20110523, end: 20110526
  33. DECADRON [Concomitant]
     Dosage: 2 MILLIGRAM
     Route: 048
     Dates: start: 20110527, end: 20110528
  34. DECADRON [Concomitant]
     Dosage: 4 MILLIGRAM
     Route: 048
     Dates: start: 20110626, end: 20110629
  35. DECADRON [Concomitant]
     Dosage: 2 MILLIGRAM
     Route: 048
     Dates: start: 20110630, end: 20110701
  36. DECADRON [Concomitant]
     Dosage: 4 MILLIGRAM
     Route: 048
     Dates: start: 20110729, end: 20110801
  37. DECADRON [Concomitant]
     Dosage: 2 MILLIGRAM
     Route: 048
     Dates: start: 20110802, end: 20110803
  38. DECADRON [Concomitant]
     Dosage: 4 MILLIGRAM
     Route: 048
     Dates: start: 20110826, end: 20110829
  39. DECADRON [Concomitant]
     Dosage: 2 MILLIGRAM
     Route: 048
     Dates: start: 20110830, end: 20110831
  40. DECADRON [Concomitant]
     Dosage: 4 MILLIGRAM
     Route: 048
     Dates: start: 20111106, end: 20111109
  41. DECADRON [Concomitant]
     Dosage: 2 MILLIGRAM
     Route: 048
     Dates: start: 20111110, end: 20111111
  42. DECADRON [Concomitant]
     Dosage: 4 MILLIGRAM
     Route: 048
     Dates: start: 20111204, end: 20111207
  43. DECADRON [Concomitant]
     Dosage: 2 MILLIGRAM
     Route: 048
     Dates: start: 20111208, end: 20111209
  44. DECADRON [Concomitant]
     Dosage: 4 MILLIGRAM
     Route: 048
     Dates: start: 20120108, end: 20120111
  45. DECADRON [Concomitant]
     Dosage: 2 MILLIGRAM
     Route: 048
     Dates: start: 20120112, end: 20120113
  46. DECADRON [Concomitant]
     Dosage: 4 MILLIGRAM
     Route: 048
     Dates: start: 20120205, end: 20120208
  47. DECADRON [Concomitant]
     Dosage: 2 MILLIGRAM
     Route: 048
     Dates: start: 20120209, end: 20120210
  48. DECADRON [Concomitant]
     Dosage: 4 MILLIGRAM
     Route: 048
     Dates: start: 20120306, end: 20120309
  49. DECADRON [Concomitant]
     Dosage: 2 MILLIGRAM
     Route: 048
     Dates: start: 20120310, end: 20120311
  50. DECADRON [Concomitant]
     Dosage: 4 MILLIGRAM
     Route: 048
     Dates: start: 20120408, end: 20120411
  51. DECADRON [Concomitant]
     Dosage: 2 MILLIGRAM
     Route: 048
     Dates: start: 20120412, end: 20120413
  52. DECADRON [Concomitant]
     Dosage: 4 MILLIGRAM
     Route: 048
     Dates: start: 20120513, end: 20120514
  53. DECADRON [Concomitant]
     Dosage: 2 MILLIGRAM
     Route: 048
     Dates: start: 20120517, end: 20120518
  54. DECADRON [Concomitant]
     Dosage: 4 MILLIGRAM
     Route: 048
     Dates: start: 20120616, end: 20120619
  55. DECADRON [Concomitant]
     Dosage: 2 MILLIGRAM
     Route: 048
     Dates: start: 20120620, end: 20120621
  56. DECADRON [Concomitant]
     Dosage: 4 MILLIGRAM
     Route: 048
     Dates: start: 20120727, end: 20120730
  57. DECADRON [Concomitant]
     Dosage: 2 MILLIGRAM
     Route: 048
     Dates: start: 20120731, end: 20120801
  58. DECADRON [Concomitant]
     Dosage: 4 MILLIGRAM
     Route: 048
     Dates: start: 20120902, end: 20120905
  59. DECADRON [Concomitant]
     Dosage: 2 MILLIGRAM
     Route: 048
     Dates: start: 20120906, end: 20120907
  60. DECADRON [Concomitant]
     Dosage: 4 MILLIGRAM
     Route: 048
     Dates: start: 20121007, end: 20121007
  61. BAYASPIRIN [Concomitant]
     Indication: PROPHYLAXIS
     Dosage: 100 MILLIGRAM
     Route: 048
     Dates: start: 20101008
  62. OMEPRAL [Concomitant]
     Indication: PROPHYLAXIS
     Dosage: 10 MILLIGRAM
     Route: 048
     Dates: start: 20101008
  63. MYSLEE [Concomitant]
     Indication: INSOMNIA
     Dosage: 5 MILLIGRAM
     Route: 048
  64. PREDONINE [Concomitant]
     Indication: PLASMA CELL MYELOMA
     Dosage: 5 MILLIGRAM
     Route: 048
     Dates: start: 20110126, end: 20110127
  65. PREDONINE [Concomitant]
     Dosage: 2.5 MILLIGRAM
     Route: 048
     Dates: start: 20110128, end: 20110129
  66. PREDONINE [Concomitant]
     Dosage: 5 MILLIGRAM
     Route: 048
     Dates: start: 20110529, end: 20110530
  67. PREDONINE [Concomitant]
     Dosage: 2.5 MILLIGRAM
     Route: 048
     Dates: start: 20110531, end: 20110601
  68. PREDONINE [Concomitant]
     Dosage: 5 MILLIGRAM
     Route: 048
     Dates: start: 20110702, end: 20110703
  69. PREDONINE [Concomitant]
     Dosage: 2.5 MILLIGRAM
     Route: 048
     Dates: start: 20110704, end: 20110705
  70. PREDONINE [Concomitant]
     Dosage: 5 MILLIGRAM
     Route: 048
     Dates: start: 20110804, end: 20110805
  71. PREDONINE [Concomitant]
     Dosage: 2.5 MILLIGRAM
     Route: 048
     Dates: start: 20110806, end: 20110807
  72. PREDONINE [Concomitant]
     Dosage: 5 MILLIGRAM
     Route: 048
     Dates: start: 20110901, end: 20110902
  73. PREDONINE [Concomitant]
     Dosage: 2.5 MILLIGRAM
     Route: 048
     Dates: start: 20110903, end: 20110904
  74. PREDONINE [Concomitant]
     Dosage: 2.5 MILLIGRAM
     Route: 048
     Dates: start: 20111114, end: 20111115
  75. PREDONINE [Concomitant]
     Dosage: 5 MILLIGRAM
     Route: 048
     Dates: start: 20111210, end: 20111211
  76. PREDONINE [Concomitant]
     Dosage: 2.5 MILLIGRAM
     Route: 048
     Dates: start: 20111212, end: 20111213
  77. PREDONINE [Concomitant]
     Dosage: 5 MILLIGRAM
     Route: 048
     Dates: start: 20120114, end: 20120115
  78. PREDONINE [Concomitant]
     Dosage: 2.5 MILLIGRAM
     Route: 048
     Dates: start: 20120116, end: 20120117
  79. PREDONINE [Concomitant]
     Dosage: 5 MILLIGRAM
     Route: 048
     Dates: start: 20120211, end: 20120212
  80. PREDONINE [Concomitant]
     Dosage: 2.5 MILLIGRAM
     Route: 048
     Dates: start: 20120213, end: 20120214
  81. PREDONINE [Concomitant]
     Dosage: 5 MILLIGRAM
     Route: 048
     Dates: start: 20120312, end: 20120313
  82. PREDONINE [Concomitant]
     Dosage: 2.5 MILLIGRAM
     Route: 048
     Dates: start: 20120314, end: 20120315
  83. PREDONINE [Concomitant]
     Dosage: 5 MILLIGRAM
     Route: 048
     Dates: start: 20120414, end: 20120415
  84. PREDONINE [Concomitant]
     Dosage: 2.5 MILLIGRAM
     Route: 048
     Dates: start: 20120416, end: 20120417
  85. PREDONINE [Concomitant]
     Dosage: 5 MILLIGRAM
     Route: 048
     Dates: start: 20120519, end: 20120520
  86. PREDONINE [Concomitant]
     Dosage: 2.5 MILLIGRAM
     Route: 048
     Dates: start: 20120521, end: 20120522
  87. PREDONINE [Concomitant]
     Dosage: 5 MILLIGRAM
     Route: 048
     Dates: start: 20120622, end: 20120623
  88. PREDONINE [Concomitant]
     Dosage: 2.5 MILLIGRAM
     Route: 048
     Dates: start: 20120624, end: 20120625
  89. PREDONINE [Concomitant]
     Dosage: 5 MILLIGRAM
     Route: 048
     Dates: start: 20120802, end: 20120803
  90. PREDONINE [Concomitant]
     Dosage: 2.5 MILLIGRAM
     Route: 048
     Dates: start: 20120902, end: 20120905
  91. PREDONINE [Concomitant]
     Dosage: 5 MILLIGRAM
     Route: 048
     Dates: start: 20120908, end: 20120909
  92. PREDONINE [Concomitant]
     Dosage: 2.5 MILLIGRAM
     Route: 048
     Dates: start: 20120910, end: 20120911
  93. LENDORMIN [Concomitant]
     Indication: INSOMNIA
     Dosage: .25 MILLIGRAM
     Route: 048
     Dates: start: 20110523, end: 20110530
  94. ZOMETA [Concomitant]
     Indication: UNEVALUABLE EVENT
     Dosage: 4 MILLIGRAM
     Route: 041
     Dates: start: 20110728, end: 20110929

REACTIONS (5)
  - Hyperglycaemia [Recovering/Resolving]
  - Platelet count decreased [Recovered/Resolved]
  - Neuropathy peripheral [Recovering/Resolving]
  - Lymphadenopathy [Recovered/Resolved]
  - Platelet count decreased [Recovered/Resolved]
